FAERS Safety Report 5517747-6 (Version None)
Quarter: 2007Q4

REPORT INFORMATION
  Report Type: 
  Country: None (occurrence: None)
  Receive Date: 20071113
  Receipt Date: 20071104
  Transmission Date: 20080405
  Serious: Yes (Other)
  Sender: FDA-Public Use
  Company Number: CHPA2007US11718

PATIENT
  Age: 7 Year
  Sex: Female

DRUGS (1)
  1. EX-LAX REG STR CHOCOLATED LAX PCS SEN (NCH)(SENNA GLYCOSIDES (CA SALTS [Suspect]
     Dosage: 90 MG, PER DAY, SINCE SHE WAS AN INFANT, ORAL
     Route: 048

REACTIONS (2)
  - ANAL ATRESIA [None]
  - OVERDOSE [None]
